FAERS Safety Report 10757939 (Version 2)
Quarter: 2015Q1

REPORT INFORMATION
  Report Type: Other
  Country: FR (occurrence: FR)
  Receive Date: 20150203
  Receipt Date: 20150211
  Transmission Date: 20150721
  Serious: Yes (Hospitalization, Other)
  Sender: FDA-Public Use
  Company Number: FR-MYLANLABS-2015M1002699

PATIENT

DRUGS (3)
  1. TAZOCILLINE [Suspect]
     Active Substance: PIPERACILLIN SODIUM\TAZOBACTAM SODIUM
     Indication: OSTEOMYELITIS
     Dosage: 4 G, BID
     Route: 041
     Dates: start: 20141010, end: 20141028
  2. XEROQUEL [Concomitant]
     Active Substance: QUETIAPINE FUMARATE
     Indication: PRODUCT USED FOR UNKNOWN INDICATION
     Dosage: 300 MG, QD
     Dates: start: 20140610
  3. VANCOMYCIN HYDROCHLORIDE. [Suspect]
     Active Substance: VANCOMYCIN HYDROCHLORIDE
     Indication: OSTEOMYELITIS
     Dosage: 1 G, BID
     Route: 041
     Dates: start: 20141010, end: 20141028

REACTIONS (6)
  - Eosinophilia [Recovered/Resolved]
  - Inflammation [Recovering/Resolving]
  - Drug level below therapeutic [Unknown]
  - Rash erythematous [Recovered/Resolved]
  - Enterobacter infection [Recovered/Resolved]
  - Venous thrombosis limb [Unknown]

NARRATIVE: CASE EVENT DATE: 20141020
